FAERS Safety Report 9366799 (Version 1)
Quarter: 2013Q2

REPORT INFORMATION
  Report Type: Spontaneous
  Country: FR (occurrence: FR)
  Receive Date: 20130625
  Receipt Date: 20130625
  Transmission Date: 20140414
  Serious: Yes (Other)
  Sender: FDA-Public Use
  Company Number: FR-TEVA-414725ISR

PATIENT
  Age: 73 Year
  Sex: Female

DRUGS (5)
  1. FUROSEMIDE TEVA 40 MG [Suspect]
     Indication: CARDIAC FAILURE
     Dosage: 80 MILLIGRAM DAILY;
  2. APROVEL [Concomitant]
  3. NOVONORM [Concomitant]
  4. PREVISCAN [Concomitant]
  5. TAHOR [Concomitant]

REACTIONS (2)
  - Cardiac failure [Unknown]
  - Oedema peripheral [Unknown]
